FAERS Safety Report 23559830 (Version 1)
Quarter: 2024Q1

REPORT INFORMATION
  Report Type: Spontaneous
  Country: PT (occurrence: PT)
  Receive Date: 20240223
  Receipt Date: 20240223
  Transmission Date: 20240410
  Serious: Yes (Hospitalization, Other)
  Sender: FDA-Public Use
  Company Number: PT-STRIDES ARCOLAB LIMITED-2024SP002175

PATIENT
  Sex: Female

DRUGS (10)
  1. PREDNISOLONE [Suspect]
     Active Substance: PREDNISOLONE
     Indication: Immunosuppressant drug therapy
     Dosage: 5 MILLIGRAM, DAILY
     Route: 065
  2. PREDNISOLONE [Suspect]
     Active Substance: PREDNISOLONE
     Indication: Renal transplant
  3. PREDNISOLONE [Suspect]
     Active Substance: PREDNISOLONE
     Indication: Pancreas transplant
  4. MYCOPHENOLATE MOFETIL [Suspect]
     Active Substance: MYCOPHENOLATE MOFETIL
     Indication: Immunosuppressant drug therapy
     Dosage: 500 MILLIGRAM, BID
     Route: 065
  5. MYCOPHENOLATE MOFETIL [Suspect]
     Active Substance: MYCOPHENOLATE MOFETIL
     Indication: Renal transplant
     Dosage: UNK, DOSE REDUCED
     Route: 065
  6. MYCOPHENOLATE MOFETIL [Suspect]
     Active Substance: MYCOPHENOLATE MOFETIL
     Indication: Pancreas transplant
  7. TACROLIMUS [Suspect]
     Active Substance: TACROLIMUS
     Indication: Immunosuppressant drug therapy
     Dosage: 11 MILLIGRAM, DAILY
     Route: 065
  8. TACROLIMUS [Suspect]
     Active Substance: TACROLIMUS
     Indication: Renal transplant
  9. TACROLIMUS [Suspect]
     Active Substance: TACROLIMUS
     Indication: Pancreas transplant
  10. RITUXIMAB [Concomitant]
     Active Substance: RITUXIMAB
     Indication: Transplant rejection
     Dosage: UNK
     Route: 065

REACTIONS (9)
  - Renal impairment [Recovered/Resolved]
  - Condition aggravated [Recovered/Resolved]
  - Adenovirus infection [Recovered/Resolved]
  - Cytomegalovirus infection [Recovered/Resolved]
  - Polyomavirus viraemia [Unknown]
  - Klebsiella infection [Unknown]
  - Urinary tract infection [Unknown]
  - Sepsis [Unknown]
  - Off label use [Unknown]
